FAERS Safety Report 5915815-8 (Version None)
Quarter: 2008Q4

REPORT INFORMATION
  Report Type: 
  Country: None (occurrence: None)
  Receive Date: 20081010
  Receipt Date: 20081001
  Transmission Date: 20090506
  Serious: Yes (Other)
  Sender: FDA-Public Use
  Company Number: US-PFIZER INC-2008076649

PATIENT
  Sex: Female
  Weight: 48.636 kg

DRUGS (6)
  1. LYRICA [Suspect]
     Indication: FIBROMYALGIA
     Route: 048
     Dates: start: 20060101
  2. CYMBALTA [Suspect]
     Indication: FIBROMYALGIA
     Dates: start: 20060101
  3. PLAQUENIL [Suspect]
  4. LEVSIN [Suspect]
  5. ORAL CONTRACEPTIVE NOS [Suspect]
  6. ANTIINFLAMMATORY/ANTIRHEUMATIC PRODUCTS [Suspect]

REACTIONS (13)
  - CONVULSION [None]
  - DISTURBANCE IN ATTENTION [None]
  - DRUG INTOLERANCE [None]
  - FEELING ABNORMAL [None]
  - FORMICATION [None]
  - HEADACHE [None]
  - INSOMNIA [None]
  - IRRITABILITY [None]
  - LETHARGY [None]
  - MUSCLE SPASMS [None]
  - NAUSEA [None]
  - SENSORY DISTURBANCE [None]
  - VISION BLURRED [None]
